FAERS Safety Report 9779210 (Version 1)
Quarter: 2013Q4

REPORT INFORMATION
  Report Type: Spontaneous
  Country: US (occurrence: US)
  Receive Date: 20131223
  Receipt Date: 20131223
  Transmission Date: 20140711
  Serious: No
  Sender: FDA-Public Use
  Company Number: US-ENDO PHARMACEUTICALS INC.-OPCR20130435

PATIENT
  Sex: Female

DRUGS (2)
  1. OPANA ER 7.5MG [Suspect]
     Indication: FACIAL PAIN
     Route: 048
     Dates: start: 201305
  2. OPANA 5MG [Suspect]
     Indication: BREAKTHROUGH PAIN
     Dosage: 5MG
     Route: 048
     Dates: start: 201305

REACTIONS (1)
  - Drug screen positive [Unknown]
